FAERS Safety Report 21126318 (Version 13)
Quarter: 2023Q2

REPORT INFORMATION
  Report Type: Report from Study
  Country: US (occurrence: US)
  Receive Date: 20220725
  Receipt Date: 20230403
  Transmission Date: 20230722
  Serious: Yes (Hospitalization, Other)
  Sender: FDA-Public Use
  Company Number: US-NOVARTISPH-NVSC2022US166136

PATIENT
  Sex: Female

DRUGS (2)
  1. OMNITROPE [Suspect]
     Active Substance: SOMATROPIN
     Indication: Product used for unknown indication
     Dosage: UNK
     Route: 065
  2. OMNITROPE [Suspect]
     Active Substance: SOMATROPIN
     Dosage: UNK (INCREASED FOR 6 WEEKS)
     Route: 065

REACTIONS (13)
  - COVID-19 [Unknown]
  - Illness [Unknown]
  - Oxygen saturation decreased [Unknown]
  - Brain neoplasm [Not Recovered/Not Resolved]
  - Skin cancer [Unknown]
  - Malignant neoplasm progression [Unknown]
  - Malaise [Unknown]
  - Back pain [Unknown]
  - Gait inability [Unknown]
  - Blood growth hormone decreased [Unknown]
  - Skin lesion [Unknown]
  - Pigmentation disorder [Unknown]
  - Drug ineffective [Unknown]
